FAERS Safety Report 15673969 (Version 1)
Quarter: 2018Q4

REPORT INFORMATION
  Report Type: Spontaneous
  Country: US (occurrence: US)
  Receive Date: 20181129
  Receipt Date: 20181129
  Transmission Date: 20190205
  Serious: No
  Sender: FDA-Public Use
  Company Number: US-CELGENEUS-USA-20181107210

PATIENT

DRUGS (2)
  1. APREMILAST [Suspect]
     Active Substance: APREMILAST
     Indication: OFF LABEL USE
  2. APREMILAST [Suspect]
     Active Substance: APREMILAST
     Indication: ALOPECIA AREATA
     Dosage: 60 MILLIGRAM
     Route: 048

REACTIONS (3)
  - Arthralgia [Unknown]
  - Nausea [Unknown]
  - Diarrhoea [Unknown]
